FAERS Safety Report 11088324 (Version 3)
Quarter: 2015Q3

REPORT INFORMATION
  Report Type: Spontaneous
  Country: US (occurrence: US)
  Receive Date: 20150430
  Receipt Date: 20150814
  Transmission Date: 20151125
  Serious: Yes (Other)
  Sender: FDA-Public Use
  Company Number: US-MDCO-15-00218

PATIENT
  Sex: Female

DRUGS (1)
  1. ORBACTIV [Suspect]
     Active Substance: ORITAVANCIN
     Indication: PRODUCT USED FOR UNKNOWN INDICATION
     Dates: start: 20150403, end: 20150403

REACTIONS (4)
  - Leg amputation [Recovered/Resolved with Sequelae]
  - Leukopenia [Unknown]
  - Thrombocytopenia [Unknown]
  - Drug ineffective [Unknown]

NARRATIVE: CASE EVENT DATE: 201504
